FAERS Safety Report 5963105-X (Version None)
Quarter: 2008Q4

REPORT INFORMATION
  Report Type: 
  Country: None (occurrence: None)
  Receive Date: 20081124
  Receipt Date: 20081111
  Transmission Date: 20090506
  Serious: Yes (Hospitalization)
  Sender: FDA-Public Use
  Company Number: GB-CELGENEUS-167-C5013-07060675

PATIENT
  Sex: Female

DRUGS (2)
  1. REVLIMID [Suspect]
     Route: 048
     Dates: start: 20070602, end: 20070609
  2. DEXAMETHASONE 0.5MG TAB [Suspect]
     Route: 065
     Dates: start: 20070602, end: 20070609

REACTIONS (2)
  - ANGINA UNSTABLE [None]
  - HYPERGLYCAEMIA [None]
